FAERS Safety Report 15789700 (Version 1)
Quarter: 2019Q1

REPORT INFORMATION
  Report Type: Spontaneous
  Country: HT (occurrence: HT)
  Receive Date: 20190104
  Receipt Date: 20190104
  Transmission Date: 20190417
  Serious: Yes (Life-Threatening, Other)
  Sender: FDA-Public Use
  Company Number: HT-ELI_LILLY_AND_COMPANY-HT201901000667

PATIENT
  Age: 49 Year
  Sex: Female
  Weight: 61 kg

DRUGS (7)
  1. CYCLOSERINE. [Suspect]
     Active Substance: CYCLOSERINE
     Indication: TUBERCULOSIS
     Dosage: 750 MG, DAILY
     Route: 048
     Dates: start: 20180613, end: 201812
  2. HUMULIN 70/30 [Suspect]
     Active Substance: INSULIN HUMAN
     Indication: PRODUCT USED FOR UNKNOWN INDICATION
     Dosage: 20 IU, EACH MORNING
     Route: 058
     Dates: start: 20180613, end: 201812
  3. LEVOFLOXACIN. [Suspect]
     Active Substance: LEVOFLOXACIN
     Indication: TUBERCULOSIS
     Dosage: 750 MG, DAILY
     Route: 048
     Dates: start: 20180613, end: 201812
  4. PYRAZINAMIDE. [Suspect]
     Active Substance: PYRAZINAMIDE
     Indication: TUBERCULOSIS
     Dosage: 1200 MG, DAILY
     Route: 048
     Dates: start: 20180613, end: 201812
  5. HUMULIN 70/30 [Suspect]
     Active Substance: INSULIN HUMAN
     Dosage: 10 IU, EACH EVENING
     Route: 058
     Dates: start: 20180613, end: 201812
  6. ETHIONAMIDE [Suspect]
     Active Substance: ETHIONAMIDE
     Indication: TUBERCULOSIS
     Dosage: 750 MG, DAILY
     Route: 048
     Dates: start: 20180613, end: 201812
  7. DELAMANID [Suspect]
     Active Substance: DELAMANID
     Indication: TUBERCULOSIS
     Dosage: 100 MG, BID
     Route: 048
     Dates: start: 20180613, end: 201812

REACTIONS (11)
  - Blood sodium decreased [Recovered/Resolved]
  - Blood urea increased [Unknown]
  - Blood cholesterol increased [Unknown]
  - Vomiting [Recovered/Resolved]
  - Hypokalaemia [Unknown]
  - Pain in extremity [Recovering/Resolving]
  - Blood chloride decreased [Recovered/Resolved]
  - Glucose urine present [Unknown]
  - Diabetic ketoacidosis [Recovering/Resolving]
  - Protein urine present [Unknown]
  - Blood potassium increased [Recovered/Resolved]

NARRATIVE: CASE EVENT DATE: 20181205
